FAERS Safety Report 12805419 (Version 1)
Quarter: 2016Q4

REPORT INFORMATION
  Report Type: Spontaneous
  Country: NL (occurrence: NL)
  Receive Date: 20161004
  Receipt Date: 20161004
  Transmission Date: 20170207
  Serious: Yes (Death, Hospitalization, Other)
  Sender: FDA-Public Use
  Company Number: NL-AUROBINDO-AUR-APL-2016-11904

PATIENT
  Age: 81 Year
  Sex: Female

DRUGS (2)
  1. METFORMIN [Suspect]
     Active Substance: METFORMIN HYDROCHLORIDE
     Indication: TYPE 2 DIABETES MELLITUS
     Route: 048
     Dates: start: 2010
  2. SOTALOL. [Interacting]
     Active Substance: SOTALOL
     Indication: PRODUCT USED FOR UNKNOWN INDICATION
     Route: 048
     Dates: start: 2015

REACTIONS (8)
  - Atrioventricular block [Fatal]
  - Acidosis [Unknown]
  - Cardiogenic shock [Fatal]
  - Drug interaction [Fatal]
  - Bradycardia [Fatal]
  - Renal failure [Fatal]
  - Hyperkalaemia [Fatal]
  - Cardiac failure [Unknown]

NARRATIVE: CASE EVENT DATE: 201604
